FAERS Safety Report 19889383 (Version 1)
Quarter: 2021Q3

REPORT INFORMATION
  Report Type: Spontaneous
  Country: PT (occurrence: PT)
  Receive Date: 20210928
  Receipt Date: 20210928
  Transmission Date: 20211014
  Serious: Yes (Hospitalization, Other)
  Sender: FDA-Public Use
  Company Number: PT-MYLANLABS-2021M1064171

PATIENT
  Age: 53 Year
  Sex: Female

DRUGS (19)
  1. FLUVOXAMINE [Suspect]
     Active Substance: FLUVOXAMINE
     Indication: PRODUCT USED FOR UNKNOWN INDICATION
     Dosage: 1 DOSAGE FORM, QD (DINNER)
  2. DILTIAZEM. [Concomitant]
     Active Substance: DILTIAZEM
     Dosage: 1 DOSAGE FORM, QD (BREAKFAST)
  3. VIGANTOL                           /00318501/ [Concomitant]
     Active Substance: CHOLECALCIFEROL
     Dosage: 3 GTT DROPS, QD (BREAKFAST)
  4. CLONAZEPAM. [Concomitant]
     Active Substance: CLONAZEPAM
     Dosage: 1 DOSAGE FORM, QD (BEDTIME)
  5. FERROUS SULFATE. [Concomitant]
     Active Substance: FERROUS SULFATE
     Dosage: 1 DOSAGE FORM, QD (FAST)
  6. RAMIPRIL. [Concomitant]
     Active Substance: RAMIPRIL
     Dosage: 1 DOSAGE FORM, QD (DINNER)
  7. CYAMEMAZINE [Concomitant]
     Active Substance: CYAMEMAZINE
     Dosage: 1 DOSAGE FORM, QD (BEDTIME)
  8. ESOMEPRAZOLE. [Concomitant]
     Active Substance: ESOMEPRAZOLE MAGNESIUM
     Dosage: 1 DOSAGE FORM, QD (FAST)
  9. PLAQUINOL [Concomitant]
     Active Substance: HYDROXYCHLOROQUINE SULFATE
     Dosage: 1 DOSAGE FORM, QD (DINNER)
  10. LEPICORTINOLO                      /00016201/ [Concomitant]
     Active Substance: PREDNISOLONE
     Dosage: 1 DOSAGE FORM, QD (BREAKFAST)
  11. ATORVASTATIN [Concomitant]
     Active Substance: ATORVASTATIN
     Dosage: 1 DOSAGE FORM, QD (DINNER)
  12. FLUVOXAMINE [Suspect]
     Active Substance: FLUVOXAMINE
     Dosage: 150 MILLIGRAM
  13. FUROSEMIDE. [Concomitant]
     Active Substance: FUROSEMIDE
     Dosage: 1 DOSAGE FORM, QD (FAST)
  14. ATOVAQUONE. [Concomitant]
     Active Substance: ATOVAQUONE
     Dosage: 1 DOSAGE FORM, QD (BREAKFAST)
  15. CYAMEMAZINE [Concomitant]
     Active Substance: CYAMEMAZINE
     Dosage: HALF TABLET, QD (BEDTIME)
  16. LERCANIDIPINE [Concomitant]
     Active Substance: LERCANIDIPINE
     Dosage: 1 DOSAGE FORM, BID (BREAKFAST, DINNER)
  17. MYCOPHENOLATE MOFETIL. [Concomitant]
     Active Substance: MYCOPHENOLATE MOFETIL
     Dosage: 2 DOSAGE FORM, BID (BREAKFAST, DINNER)
  18. ANORO ELLIPTA [Concomitant]
     Active Substance: UMECLIDINIUM BROMIDE\VILANTEROL TRIFENATATE
     Dosage: UNK, QD (1 INHALATION, BREAKFAST)
  19. NEBIVOLOL. [Concomitant]
     Active Substance: NEBIVOLOL
     Dosage: 5 MILLIGRAM, QD (DINNER)

REACTIONS (6)
  - Treatment noncompliance [Unknown]
  - Gastroenteritis [Unknown]
  - Cystitis [Unknown]
  - Acute kidney injury [Unknown]
  - Neuropsychiatric lupus [Unknown]
  - Inappropriate schedule of product administration [Unknown]
